FAERS Safety Report 10028432 (Version 2)
Quarter: 2014Q1

REPORT INFORMATION
  Report Type: Spontaneous
  Country: US (occurrence: US)
  Receive Date: 20140321
  Receipt Date: 20140321
  Transmission Date: 20141002
  Serious: Yes (Disabling)
  Sender: FDA-Public Use
  Company Number: US-GE HEALTHCARE MEDICAL DIAGNOSTICS-OSCN-PR-0806S-0330

PATIENT
  Age: 54 Year
  Sex: Male
  Weight: 77.1 kg

DRUGS (13)
  1. OMNISCAN [Suspect]
     Indication: EOSINOPHILIA
     Route: 042
     Dates: start: 20050825, end: 20050825
  2. OMNISCAN [Suspect]
     Indication: RENAL FAILURE ACUTE
     Route: 042
     Dates: start: 20050830, end: 20050830
  3. OMNISCAN [Suspect]
     Indication: INTERVERTEBRAL DISC PROTRUSION
     Route: 042
     Dates: start: 20050901, end: 20050901
  4. OMNISCAN [Suspect]
     Indication: ABSCESS
     Route: 042
     Dates: start: 20051003, end: 20051003
  5. OMNISCAN [Suspect]
     Indication: WHITE BLOOD CELL COUNT INCREASED
     Route: 042
     Dates: start: 20051018, end: 20051018
  6. OMNISCAN [Suspect]
     Indication: PYREXIA
     Route: 042
     Dates: start: 20051021, end: 20051021
  7. OMNISCAN [Suspect]
     Indication: SPINAL PAIN
     Route: 042
     Dates: start: 20051103, end: 20051103
  8. OMNISCAN [Suspect]
     Indication: ARTHRALGIA
     Route: 042
     Dates: start: 20060317, end: 20060317
  9. OMNISCAN [Suspect]
     Indication: SEPSIS
     Route: 042
     Dates: start: 20050908, end: 20050908
  10. OMNISCAN [Suspect]
     Indication: OSTEOMYELITIS
     Route: 042
     Dates: start: 20050929, end: 20050929
  11. OMNISCAN [Suspect]
     Indication: OSTEOMYELITIS
     Route: 042
     Dates: start: 20051010, end: 20051010
  12. OPTIMARK [Suspect]
     Indication: DISORIENTATION
     Route: 042
     Dates: start: 20050420, end: 20050420
  13. OPTIMARK [Suspect]
     Indication: EMBOLIC STROKE
     Route: 042
     Dates: start: 20050705, end: 20050705

REACTIONS (1)
  - Nephrogenic systemic fibrosis [Not Recovered/Not Resolved]
